FAERS Safety Report 21132044 (Version 1)
Quarter: 2022Q3

REPORT INFORMATION
  Report Type: Spontaneous
  Country: US (occurrence: US)
  Receive Date: 20220726
  Receipt Date: 20220726
  Transmission Date: 20221026
  Serious: No
  Sender: FDA-Public Use
  Company Number: US-BAYER-2022A104422

PATIENT
  Age: 77 Year
  Sex: Male

DRUGS (3)
  1. MIRALAX [Suspect]
     Active Substance: POLYETHYLENE GLYCOL 3350
     Dosage: 1 DF, QD (ONE DOSE EVERY DAY)
     Route: 048
     Dates: end: 20220724
  2. LOSARTAN [Concomitant]
     Active Substance: LOSARTAN
     Indication: Prophylaxis
     Dosage: 25 MG (EVERY NIGHT)
     Route: 048
  3. NEXIUM I.V. [Suspect]
     Active Substance: ESOMEPRAZOLE SODIUM
     Indication: Prophylaxis
     Dosage: 20 MG, OM
     Route: 048

REACTIONS (3)
  - Abdominal pain upper [Recovering/Resolving]
  - Abdominal distension [Recovering/Resolving]
  - Off label use [Recovering/Resolving]
